FAERS Safety Report 7861123-8 (Version None)
Quarter: 2011Q4

REPORT INFORMATION
  Report Type: 
  Country: None (occurrence: None)
  Receive Date: 20111026
  Receipt Date: 20111012
  Transmission Date: 20120403
  Serious: Yes (Other)
  Sender: FDA-Public Use
  Company Number: US-1188498

PATIENT
  Age: 83 Year
  Sex: Female

DRUGS (6)
  1. NEO-SYNEPHRINE 2.5 % EYE DROPS (NOT SPECIFIED) [Suspect]
     Indication: PREOPERATIVE CARE
     Dosage: (OPHTHALMIC)
     Route: 047
     Dates: start: 20111005, end: 20111005
  2. BSS [Suspect]
     Indication: EYE IRRIGATION
     Dosage: (INTRAOCULAR)
     Route: 031
     Dates: start: 20111005, end: 20111005
  3. TETRACYCLINE [Suspect]
     Indication: PREOPERATIVE CARE
     Dosage: (OPHTHALMIC)
     Route: 047
     Dates: start: 20111005, end: 20111005
  4. VIGAMOX [Suspect]
     Indication: PREOPERATIVE CARE
     Dosage: (OPHTHALMIC)
     Route: 047
     Dates: start: 20111005, end: 20111005
  5. NEVANAC [Suspect]
     Indication: PREOPERATIVE CARE
     Dosage: (OPHTHALMIC)
     Route: 047
     Dates: start: 20111005, end: 20111005
  6. MYDRIACYL [Suspect]
     Indication: PREOPERATIVE CARE
     Dosage: (OPHTHALMIC)
     Route: 047
     Dates: start: 20111005, end: 20111005

REACTIONS (1)
  - TOXIC ANTERIOR SEGMENT SYNDROME [None]
